FAERS Safety Report 8955101 (Version 1)
Quarter: 2012Q4

REPORT INFORMATION
  Report Type: 
  Country: US (occurrence: US)
  Receive Date: 20121207
  Receipt Date: 20121207
  Transmission Date: 20130627
  Serious: No
  Sender: FDA-Public Use
  Company Number: US-009507513-1212USA002777

PATIENT
  Sex: Male

DRUGS (1)
  1. LOTRIMIN ULTRA [Suspect]
     Indication: TINEA PEDIS
     Dosage: UNK, Unknown
     Route: 061
     Dates: start: 201210

REACTIONS (2)
  - Swelling [Unknown]
  - Condition aggravated [Unknown]
